FAERS Safety Report 20419945 (Version 1)
Quarter: 2022Q1

REPORT INFORMATION
  Report Type: Spontaneous
  Country: US (occurrence: None)
  Receive Date: 20220203
  Receipt Date: 20220203
  Transmission Date: 20220423
  Serious: Yes (Hospitalization, Other)
  Sender: FDA-Public Use
  Company Number: US-MLMSERVICE-20220120-3327902-1

PATIENT
  Age: 89 Year
  Sex: Male

DRUGS (3)
  1. AMIODARONE [Suspect]
     Active Substance: AMIODARONE
     Indication: Cardiac failure congestive
     Route: 065
  2. AMIODARONE [Suspect]
     Active Substance: AMIODARONE
     Indication: Atrial fibrillation
  3. AMIODARONE [Suspect]
     Active Substance: AMIODARONE
     Indication: Condition aggravated

REACTIONS (4)
  - Pulmonary toxicity [Recovering/Resolving]
  - Pleural effusion [Recovering/Resolving]
  - Lung consolidation [Recovering/Resolving]
  - Toxicity to various agents [Recovering/Resolving]
